FAERS Safety Report 4963570-0 (Version None)
Quarter: 2006Q1

REPORT INFORMATION
  Report Type: 
  Country: None (occurrence: None)
  Receive Date: 20060201
  Receipt Date: 20051112
  Transmission Date: 20060701
  Serious: No
  Sender: FDA-Public Use
  Company Number: 2005PV004414

PATIENT
  Age: 63 Year
  Sex: Female

DRUGS (8)
  1. BYETTA [Suspect]
     Indication: DIABETES MELLITUS NON-INSULIN-DEPENDENT
     Dosage: SEE IMAGE
     Route: 058
     Dates: start: 20050911, end: 20051013
  2. BYETTA [Suspect]
     Indication: DIABETES MELLITUS NON-INSULIN-DEPENDENT
     Dosage: SEE IMAGE
     Route: 058
     Dates: start: 20051014
  3. BYETTA [Suspect]
     Indication: DIABETES MELLITUS NON-INSULIN-DEPENDENT
     Dosage: SEE IMAGE
     Route: 058
     Dates: start: 20051014
  4. AVAPRO [Concomitant]
  5. ALTACE [Concomitant]
  6. GLUCOPHAGE [Concomitant]
  7. LIPITOR [Concomitant]
  8. PRANDIN [Concomitant]

REACTIONS (2)
  - ALOPECIA [None]
  - WEIGHT DECREASED [None]
